FAERS Safety Report 8069898-2 (Version None)
Quarter: 2012Q1

REPORT INFORMATION
  Report Type: 
  Country: None (occurrence: None)
  Receive Date: 20120125
  Receipt Date: 20120113
  Transmission Date: 20120608
  Serious: Yes (Hospitalization)
  Sender: FDA-Public Use
  Company Number: US-ELI_LILLY_AND_COMPANY-US201110002074

PATIENT
  Sex: Female

DRUGS (6)
  1. VITAMIN D [Concomitant]
     Dosage: 50000 IU, QD
  2. FORTEO [Suspect]
     Indication: OSTEOPOROSIS
     Dosage: 20 UG, QD
     Route: 065
     Dates: start: 20111012, end: 20111109
  3. FORTEO [Suspect]
     Dosage: 20 UG, QD
     Dates: start: 20120101
  4. ASPIRIN [Concomitant]
     Dosage: 81 MG, QD
  5. ATENOLOL [Concomitant]
     Dosage: 25 MG, QD
  6. ACYCLOVIR [Concomitant]
     Dosage: 400 MG, QD

REACTIONS (4)
  - MENSTRUAL DISORDER [None]
  - FATIGUE [None]
  - INTERVERTEBRAL DISC OPERATION [None]
  - CONSTIPATION [None]
